FAERS Safety Report 22064959 (Version 3)
Quarter: 2023Q2

REPORT INFORMATION
  Report Type: Report from Study
  Country: BR (occurrence: BR)
  Receive Date: 20230306
  Receipt Date: 20230407
  Transmission Date: 20230721
  Serious: Yes (Other)
  Sender: FDA-Public Use
  Company Number: BR-TAKEDA-2023TUS022042

PATIENT
  Sex: Female
  Weight: 20 kg

DRUGS (2)
  1. HEMO-8R [Suspect]
     Active Substance: ANTIHEMOPHILIC FACTOR, HUMAN RECOMBINANT
     Indication: Factor VIII deficiency
     Dosage: UNK
     Route: 042
  2. HEMO-8R [Suspect]
     Active Substance: ANTIHEMOPHILIC FACTOR, HUMAN RECOMBINANT
     Dosage: 500 INTERNATIONAL UNIT, 1/WEEK
     Route: 042

REACTIONS (8)
  - Ecchymosis [Recovered/Resolved]
  - Contusion [Unknown]
  - Epistaxis [Unknown]
  - Blood urine present [Unknown]
  - Haematochezia [Unknown]
  - Haemarthrosis [Unknown]
  - Pain in extremity [Recovered/Resolved]
  - Arthralgia [Unknown]
